FAERS Safety Report 6096496-2 (Version None)
Quarter: 2009Q1

REPORT INFORMATION
  Report Type: 
  Country: None (occurrence: None)
  Receive Date: 20090227
  Receipt Date: 20090216
  Transmission Date: 20090719
  Serious: Yes (Hospitalization)
  Sender: FDA-Public Use
  Company Number: US-ELI_LILLY_AND_COMPANY-US200902003804

PATIENT
  Sex: Female

DRUGS (12)
  1. FORTEO [Suspect]
     Indication: OSTEOPOROSIS
     Dates: start: 20090101
  2. PROZAC [Concomitant]
  3. PLENDIL [Concomitant]
  4. ZOCOR [Concomitant]
  5. CENTRUM SILVER [Concomitant]
  6. CITRUCEL [Concomitant]
  7. CALTRATE [Concomitant]
  8. XANAX [Concomitant]
  9. FLEXERIL [Concomitant]
  10. ASPIRIN                                 /SCH/ [Concomitant]
     Dosage: UNK, DAILY (1/D)
  11. GLUCOSAMINE SULFATE [Concomitant]
  12. HYDROCODONE [Concomitant]

REACTIONS (4)
  - CHEST PAIN [None]
  - DEMENTIA [None]
  - RASH [None]
  - SPINAL COMPRESSION FRACTURE [None]
